FAERS Safety Report 8903793 (Version 1)
Quarter: 2012Q4

REPORT INFORMATION
  Report Type: 
  Country: US (occurrence: US)
  Receive Date: 20121113
  Receipt Date: 20121113
  Transmission Date: 20130627
  Serious: No
  Sender: FDA-Public Use
  Company Number: US-ASTRAZENECA-2012SE80221

PATIENT
  Age: 79 Year
  Sex: Female

DRUGS (4)
  1. SEROQUEL [Suspect]
     Indication: ANXIETY DISORDER
     Route: 048
  2. SEROQUEL [Suspect]
     Indication: MOOD ALTERED
     Route: 048
  3. SEROQUEL [Suspect]
     Indication: ANXIETY DISORDER
     Route: 048
  4. SEROQUEL [Suspect]
     Indication: MOOD ALTERED
     Route: 048

REACTIONS (2)
  - Hypoacusis [Unknown]
  - Drug ineffective [Unknown]
